FAERS Safety Report 5424563-2 (Version None)
Quarter: 2007Q3

REPORT INFORMATION
  Report Type: 
  Country: None (occurrence: None)
  Receive Date: 20070726
  Receipt Date: 20070504
  Transmission Date: 20080115
  Serious: No
  Sender: FDA-Public Use
  Company Number: POMP-11046

PATIENT
  Age: 11 Year
  Sex: Female
  Weight: 35 kg

DRUGS (5)
  1. MYOZYME [Suspect]
     Indication: GLYCOGEN STORAGE DISEASE TYPE II
     Dosage: 30 MG/KG Q2WKS IV
     Route: 042
     Dates: start: 20060721
  2. NASONEX [Concomitant]
  3. ADVAIR DISKUS 100/50 [Concomitant]
  4. PULMOZYME [Concomitant]
  5. TOBRAMYCIN [Concomitant]

REACTIONS (2)
  - CATHETER RELATED COMPLICATION [None]
  - INFUSION SITE EXTRAVASATION [None]
